FAERS Safety Report 19030789 (Version 1)
Quarter: 2021Q1

REPORT INFORMATION
  Report Type: Spontaneous
  Country: US (occurrence: US)
  Receive Date: 20210319
  Receipt Date: 20210319
  Transmission Date: 20210420
  Serious: Yes (Life-Threatening, Hospitalization, Disabling, Other)
  Sender: FDA-Public Use
  Company Number: None

PATIENT
  Age: 48 Year
  Sex: Female
  Weight: 81 kg

DRUGS (4)
  1. MORPHINE [Suspect]
     Active Substance: MORPHINE
  2. SOMA [Suspect]
     Active Substance: CARISOPRODOL
  3. FENTANYL. [Suspect]
     Active Substance: FENTANYL
  4. PERCOCET [Suspect]
     Active Substance: ACETAMINOPHEN\OXYCODONE HYDROCHLORIDE
     Indication: PAIN
     Route: 048
     Dates: start: 20060101, end: 20210316

REACTIONS (6)
  - Malaise [None]
  - Drug withdrawal syndrome [None]
  - Near death experience [None]
  - Renal injury [None]
  - Liver injury [None]
  - Prescribed overdose [None]

NARRATIVE: CASE EVENT DATE: 20200420
